FAERS Safety Report 4675784-8 (Version None)
Quarter: 2005Q2

REPORT INFORMATION
  Report Type: 
  Country: None (occurrence: None)
  Receive Date: 20050525
  Receipt Date: 20050513
  Transmission Date: 20051028
  Serious: Yes (Hospitalization)
  Sender: FDA-Public Use
  Company Number: MK200505-0205-1

PATIENT
  Age: 34 Year
  Sex: Female

DRUGS (5)
  1. TOFRANIL TAB [Suspect]
     Dosage: 25MG, DAILY
     Dates: start: 20041001, end: 20050504
  2. OLCADIL [Suspect]
     Dates: start: 20041001, end: 20050504
  3. AEROLIN [Concomitant]
  4. BUSCOPAN [Concomitant]
  5. DACTIL [Concomitant]

REACTIONS (8)
  - ABDOMINAL PAIN [None]
  - BRONCHITIS [None]
  - DIZZINESS [None]
  - DRUG EXPOSURE DURING PREGNANCY [None]
  - HEADACHE [None]
  - INSOMNIA [None]
  - PREGNANCY [None]
  - PREMATURE LABOUR [None]
